FAERS Safety Report 19779514 (Version 2)
Quarter: 2021Q3

REPORT INFORMATION
  Report Type: Spontaneous
  Country: US (occurrence: US)
  Receive Date: 20210902
  Receipt Date: 20210903
  Transmission Date: 20211014
  Serious: No
  Sender: FDA-Public Use
  Company Number: US-PFIZER INC-202100999099

PATIENT
  Age: 68 Year
  Sex: Male

DRUGS (12)
  1. EPINEPHRINE. [Suspect]
     Active Substance: EPINEPHRINE
     Dosage: UNK
  2. LEVAQUIN [Suspect]
     Active Substance: LEVOFLOXACIN
     Dosage: UNK
  3. TAMIFLU [Suspect]
     Active Substance: OSELTAMIVIR PHOSPHATE
     Dosage: UNK
  4. PREVACID [Suspect]
     Active Substance: LANSOPRAZOLE
     Dosage: UNK
  5. DILTIAZEM HCL [Suspect]
     Active Substance: DILTIAZEM HYDROCHLORIDE
     Dosage: UNK
  6. PENICILLIN [PENICILLIN NOS] [Suspect]
     Active Substance: PENICILLIN
     Dosage: UNK
  7. TRAMADOL HCL [Suspect]
     Active Substance: TRAMADOL HYDROCHLORIDE
     Dosage: UNK
  8. CODEINE [Suspect]
     Active Substance: CODEINE
     Dosage: UNK
  9. PHENERGAN [Suspect]
     Active Substance: PROMETHAZINE HYDROCHLORIDE
     Dosage: UNK
  10. DOXYCYCLINE HYCLATE. [Suspect]
     Active Substance: DOXYCYCLINE HYCLATE
     Dosage: UNK
  11. LIDOCAINE HCL [Suspect]
     Active Substance: LIDOCAINE HYDROCHLORIDE
     Dosage: UNK
  12. AMOXICILLIN. [Suspect]
     Active Substance: AMOXICILLIN
     Dosage: UNK

REACTIONS (1)
  - Drug hypersensitivity [Unknown]
